FAERS Safety Report 10142326 (Version 1)
Quarter: 2014Q2

REPORT INFORMATION
  Report Type: Report from Study
  Country: BR (occurrence: BR)
  Receive Date: 20140429
  Receipt Date: 20140429
  Transmission Date: 20141212
  Serious: Yes (Hospitalization, Other)
  Sender: FDA-Public Use
  Company Number: PHHY2014BR051114

PATIENT
  Sex: Female
  Weight: 42 kg

DRUGS (6)
  1. ZOTEON PODHALER [Suspect]
     Indication: CYSTIC FIBROSIS
     Dosage: 8 DF, (8 CAPSULES) DAILY
  2. PULMOZYME [Concomitant]
     Indication: CYSTIC FIBROSIS
     Dosage: 1 DF (1 AMOPULE) DAILY
  3. CREON [Concomitant]
     Indication: CYSTIC FIBROSIS
     Dosage: 18 DF (18 CAPSULES) DAILY
  4. SERTRALINE [Concomitant]
     Indication: DEPRESSION
     Dosage: 1.5 DF, DAILY
     Dates: start: 201310
  5. RISPERIDONE [Concomitant]
     Indication: DEPRESSION
     Dosage: 0.5 DF, DAILY
     Dates: start: 201310
  6. INSULIN [Concomitant]
     Indication: DIABETES MELLITUS
     Dosage: 12 U
     Dates: start: 200910

REACTIONS (1)
  - Respiratory tract infection [Recovering/Resolving]
